FAERS Safety Report 4511720-2 (Version None)
Quarter: 2004Q4

REPORT INFORMATION
  Report Type: 
  Country: None (occurrence: None)
  Receive Date: 20041129
  Receipt Date: 20041108
  Transmission Date: 20050328
  Serious: No
  Sender: FDA-Public Use
  Company Number: 200413422JP

PATIENT
  Age: 74 Year
  Sex: Female
  Weight: 89.9 kg

DRUGS (5)
  1. KETEK [Suspect]
     Indication: PNEUMONIA
     Route: 048
     Dates: start: 20041022, end: 20041102
  2. DALACIN-S [Concomitant]
     Indication: PNEUMONIA
     Route: 041
     Dates: start: 20041022, end: 20041101
  3. PONTAL [Concomitant]
     Indication: PNEUMONIA
     Route: 048
     Dates: start: 20041022, end: 20041026
  4. MUCODYNE [Concomitant]
     Indication: PNEUMONIA
     Route: 048
     Dates: start: 20041022, end: 20041102
  5. AMLODIN [Concomitant]
     Indication: HYPERTENSION
     Route: 048
     Dates: start: 20031101

REACTIONS (2)
  - STOMATITIS [None]
  - URTICARIA [None]
